FAERS Safety Report 18413657 (Version 1)
Quarter: 2020Q4

REPORT INFORMATION
  Report Type: Spontaneous
  Country: ES (occurrence: ES)
  Receive Date: 20201022
  Receipt Date: 20201022
  Transmission Date: 20210114
  Serious: Yes (Other)
  Sender: FDA-Public Use
  Company Number: ES-ALKEM LABORATORIES LIMITED-ES-ALKEM-2020-06947

PATIENT
  Age: 40 Year
  Sex: Female

DRUGS (2)
  1. DIMETHYLFUMARATE [Suspect]
     Active Substance: DIMETHYL FUMARATE
     Indication: RELAPSING-REMITTING MULTIPLE SCLEROSIS
     Dosage: UNK
     Route: 065
  2. FINGOLIMOD. [Suspect]
     Active Substance: FINGOLIMOD
     Indication: RELAPSING-REMITTING MULTIPLE SCLEROSIS
     Dosage: UNK
     Route: 065

REACTIONS (9)
  - Fatigue [Unknown]
  - Paraplegia [Unknown]
  - Bladder dysfunction [Unknown]
  - Tumefactive multiple sclerosis [Unknown]
  - Drug intolerance [Unknown]
  - Multiple sclerosis [Unknown]
  - Abdominal pain [Unknown]
  - Peripheral nerve injury [Unknown]
  - Lateral medullary syndrome [Unknown]
